FAERS Safety Report 5652915-4 (Version None)
Quarter: 2008Q1

REPORT INFORMATION
  Report Type: 
  Country: None (occurrence: None)
  Receive Date: 20080306
  Receipt Date: 20080226
  Transmission Date: 20080703
  Serious: Yes (Hospitalization)
  Sender: FDA-Public Use
  Company Number: PHHY2008US00857

PATIENT
  Age: 76 Year
  Sex: Male
  Weight: 156 kg

DRUGS (1)
  1. EXJADE [Suspect]
     Dosage: 500 MG, BID
     Route: 048
     Dates: start: 20080107, end: 20080118

REACTIONS (4)
  - BALANCE DISORDER [None]
  - DIZZINESS [None]
  - INCONTINENCE [None]
  - RECTAL HAEMORRHAGE [None]
